FAERS Safety Report 5029782-5 (Version None)
Quarter: 2006Q2

REPORT INFORMATION
  Report Type: 
  Country: None (occurrence: None)
  Receive Date: 20060504
  Receipt Date: 20060111
  Transmission Date: 20061013
  Serious: No
  Sender: FDA-Public Use
  Company Number: 200610209BWH

PATIENT
  Age: 63 Year
  Sex: Male

DRUGS (4)
  1. LEVITRA [Suspect]
     Indication: ERECTILE DYSFUNCTION
     Dosage: 10 MG, ONCE, NI
     Dates: start: 20060104
  2. LEVITRA [Suspect]
     Indication: ERECTILE DYSFUNCTION
     Dosage: 10 MG, ONCE, NI
     Dates: start: 20060110
  3. FOSAMAX [Concomitant]
  4. BACTRIM [Concomitant]

REACTIONS (5)
  - CAPILLARY DISORDER [None]
  - ERYTHEMA [None]
  - OEDEMA GENITAL [None]
  - PENIS DISORDER [None]
  - RASH MACULAR [None]
